FAERS Safety Report 10129218 (Version 1)
Quarter: 2014Q2

REPORT INFORMATION
  Report Type: Report from Study
  Country: US (occurrence: US)
  Receive Date: 20140428
  Receipt Date: 20140428
  Transmission Date: 20141212
  Serious: No
  Sender: FDA-Public Use
  Company Number: US-ABBVIE-14P-163-1203179-00

PATIENT
  Age: 48 Year
  Sex: Male

DRUGS (3)
  1. ANDROGEL [Suspect]
     Indication: TESTICULAR FAILURE
     Route: 061
     Dates: start: 20130315
  2. ANDROGEL [Suspect]
     Indication: HYPOGONADISM
  3. CIALIS [Concomitant]
     Indication: LIBIDO DISORDER
     Dates: start: 20140124

REACTIONS (3)
  - Libido disorder [Not Recovered/Not Resolved]
  - Blood testosterone increased [Not Recovered/Not Resolved]
  - Asthenia [Not Recovered/Not Resolved]
